FAERS Safety Report 13202900 (Version 1)
Quarter: 2017Q1

REPORT INFORMATION
  Report Type: Report from Study
  Country: JP (occurrence: JP)
  Receive Date: 20170209
  Receipt Date: 20170209
  Transmission Date: 20170428
  Serious: Yes (Death)
  Sender: FDA-Public Use
  Company Number: JP-CIPLA LTD.-2017JP01528

PATIENT

DRUGS (2)
  1. PACLITAXEL. [Suspect]
     Active Substance: PACLITAXEL
     Indication: NON-SMALL CELL LUNG CANCER
     Dosage: 200 MG/M2, OVER A 3-H PERIOD, ON DAY 1 REPEATED EVERY 3 WEEKS
     Route: 065
  2. CARBOPLATIN. [Suspect]
     Active Substance: CARBOPLATIN
     Indication: NON-SMALL CELL LUNG CANCER
     Dosage: UNK, DOSE CALCULATED TO PRODUCE AUC-TIME CURVE OF 6.0 MIN X MG/ML ON DAY 1, REPEATED EVERY 3 WEEKS
     Route: 065

REACTIONS (1)
  - Acute kidney injury [Fatal]
